FAERS Safety Report 20107088 (Version 2)
Quarter: 2022Q1

REPORT INFORMATION
  Report Type: Spontaneous
  Country: US (occurrence: US)
  Receive Date: 20211124
  Receipt Date: 20220216
  Transmission Date: 20220424
  Serious: Yes (Hospitalization, Other)
  Sender: FDA-Public Use
  Company Number: US-JNJFOC-20211114437

PATIENT
  Sex: Female

DRUGS (2)
  1. STELARA [Suspect]
     Active Substance: USTEKINUMAB
     Indication: Psoriasis
     Route: 058
     Dates: start: 20130527, end: 20170629
  2. STELARA [Suspect]
     Active Substance: USTEKINUMAB
     Indication: Osteoarthritis
     Route: 058
     Dates: start: 2021

REACTIONS (4)
  - Uterine haemorrhage [Unknown]
  - Clostridium difficile infection [Recovered/Resolved]
  - Arthritis [Unknown]
  - Psoriasis [Unknown]
